FAERS Safety Report 8600609-5 (Version None)
Quarter: 2012Q3

REPORT INFORMATION
  Report Type: 
  Country: None (occurrence: None)
  Receive Date: 20120803
  Receipt Date: 20120723
  Transmission Date: 20120928
  Serious: Yes (Other)
  Sender: FDA-Public Use
  Company Number: FK201202082

PATIENT
  Age: 51 Year
  Sex: Female

DRUGS (6)
  1. PREDNISONE TAB [Concomitant]
  2. CALCIUM CARBONATE [Concomitant]
  3. PAMIDRONATE DISODIUM [Suspect]
     Indication: HYPERCALCAEMIA
     Dosage: 30-60 MG 6XWEEKLY, INTRAVENOUS
     Route: 042
  4. ALENDRONATE SODIUM [Concomitant]
  5. OESTRADIOL/NORETHISTERONE [Concomitant]
  6. CALCITRIOL [Concomitant]

REACTIONS (17)
  - BLOOD CREATININE INCREASED [None]
  - LOW TURNOVER OSTEOPATHY [None]
  - KIDNEY TRANSPLANT REJECTION [None]
  - TRAUMATIC FRACTURE [None]
  - DIABETES MELLITUS [None]
  - BLOOD PARATHYROID HORMONE INCREASED [None]
  - PELVIC FRACTURE [None]
  - HYPERPLASIA [None]
  - OSTEOSCLEROSIS [None]
  - MULTIPLE FRACTURES [None]
  - FEMUR FRACTURE [None]
  - BLOOD CALCIUM INCREASED [None]
  - STRESS FRACTURE [None]
  - PATHOLOGICAL FRACTURE [None]
  - FALL [None]
  - FRACTURE NONUNION [None]
  - PARATHYROID DISORDER [None]
